FAERS Safety Report 15197263 (Version 1)
Quarter: 2018Q3

REPORT INFORMATION
  Report Type: Spontaneous
  Country: IR (occurrence: IR)
  Receive Date: 20180725
  Receipt Date: 20180725
  Transmission Date: 20181010
  Serious: Yes (Other)
  Sender: FDA-Public Use
  Company Number: IR-ELEFSEE PHARMACEUTICALS INTERNATIONAL-IR-2018WTD001170

PATIENT
  Age: 28 Year
  Sex: Female
  Weight: 60 kg

DRUGS (4)
  1. FENTANYL. [Suspect]
     Active Substance: FENTANYL
     Indication: ANAESTHESIA
     Dosage: 150 ?G, UNK
     Route: 042
  2. ATRACURIUM [Suspect]
     Active Substance: ATRACURIUM
     Indication: ANAESTHESIA
     Dosage: 35 MG, UNK
     Route: 042
  3. PROPOFOL. [Suspect]
     Active Substance: PROPOFOL
     Indication: ANAESTHESIA
     Dosage: 180 MG, UNK
     Route: 042
  4. MIDAZOLAM [Suspect]
     Active Substance: MIDAZOLAM HYDROCHLORIDE
     Indication: ANAESTHESIA
     Dosage: 3 MG, UNK
     Route: 042

REACTIONS (9)
  - Pharyngeal haemorrhage [None]
  - Tracheal haemorrhage [None]
  - Bronchospasm [Recovered/Resolved]
  - Oxygen saturation decreased [None]
  - Bronchial haemorrhage [None]
  - Hypotension [None]
  - Tachycardia [None]
  - Injury [None]
  - Endotracheal intubation complication [None]
